FAERS Safety Report 4319719-6 (Version None)
Quarter: 2004Q1

REPORT INFORMATION
  Report Type: 
  Country: None (occurrence: None)
  Receive Date: 20040316
  Receipt Date: 20040302
  Transmission Date: 20041129
  Serious: Yes (Other)
  Sender: FDA-Public Use
  Company Number: US-JNJFOC-20031003661

PATIENT
  Age: 34 Year
  Sex: Female
  Weight: 65.7716 kg

DRUGS (6)
  1. REMICADE [Suspect]
     Indication: CROHN'S DISEASE
     Dosage: SEE IMAGE
     Route: 042
     Dates: end: 20030901
  2. REMICADE [Suspect]
     Indication: CROHN'S DISEASE
     Dosage: SEE IMAGE
     Route: 042
     Dates: start: 20030428
  3. REMICADE [Suspect]
     Indication: CROHN'S DISEASE
     Dosage: SEE IMAGE
     Route: 042
     Dates: start: 20030512
  4. REMICADE [Suspect]
     Indication: CROHN'S DISEASE
     Dosage: SEE IMAGE
     Route: 042
     Dates: start: 20030721
  5. SOLU-CORTEF [Suspect]
     Indication: HYPERSENSITIVITY
     Dosage: 250 MG 1 IN 1 DAY INTRAVENOUS
     Route: 042
     Dates: start: 20030512
  6. CORTICOSTEROID CORTICOSTEROIDS [Concomitant]

REACTIONS (19)
  - ALOPECIA AREATA [None]
  - ANXIETY [None]
  - BLISTER [None]
  - BURNING SENSATION [None]
  - DERMATITIS [None]
  - ECZEMA INFECTED [None]
  - HERPES ZOSTER [None]
  - HYPERHIDROSIS [None]
  - HYPOAESTHESIA [None]
  - IMMOBILE [None]
  - IMPAIRED WORK ABILITY [None]
  - LOCALISED EXFOLIATION [None]
  - MEDICATION ERROR [None]
  - PURULENCE [None]
  - REBOUND EFFECT [None]
  - SKIN DESQUAMATION [None]
  - SKIN DISCOLOURATION [None]
  - SKIN OEDEMA [None]
  - WALKING AID USER [None]
